FAERS Safety Report 9345536 (Version 1)
Quarter: 2013Q2

REPORT INFORMATION
  Report Type: Spontaneous
  Country: CN (occurrence: CN)
  Receive Date: 20130613
  Receipt Date: 20130613
  Transmission Date: 20140414
  Serious: Yes (Other)
  Sender: FDA-Public Use
  Company Number: CN-JNJFOC-20130602718

PATIENT
  Age: 44 Year
  Sex: Male
  Weight: 65 kg

DRUGS (3)
  1. TYLENOL COLD [Suspect]
     Indication: PAIN
     Route: 048
     Dates: start: 20120109, end: 20120220
  2. SEMUSTINE [Suspect]
     Indication: PRODUCT USED FOR UNKNOWN INDICATION
     Route: 048
     Dates: start: 20120109
  3. TRADITIONAL CHINESE MEDICINE [Suspect]
     Indication: PRODUCT USED FOR UNKNOWN INDICATION
     Route: 048
     Dates: start: 20120109

REACTIONS (1)
  - Bone marrow failure [Unknown]
